FAERS Safety Report 10028670 (Version 2)
Quarter: 2014Q2

REPORT INFORMATION
  Report Type: Spontaneous
  Country: US (occurrence: US)
  Receive Date: 20140321
  Receipt Date: 20140611
  Transmission Date: 20141212
  Serious: Yes (Hospitalization, Other)
  Sender: FDA-Public Use
  Company Number: US-GILEAD-2014-0097328

PATIENT
  Sex: Female

DRUGS (14)
  1. LETAIRIS [Suspect]
     Indication: PULMONARY ARTERIAL HYPERTENSION
     Dosage: 5 MG, UNK
     Route: 048
     Dates: start: 20130226
  2. PRAVASTATIN [Concomitant]
  3. ASPIRIN [Concomitant]
  4. METOPROLOL                         /00376902/ [Concomitant]
  5. DETROL [Concomitant]
  6. CYMBALTA [Concomitant]
  7. NORTRIPTYLINE [Concomitant]
  8. DEXILANT [Concomitant]
  9. LAMOTRIGINE [Concomitant]
  10. HYDROCHLOROTHIAZIDE [Concomitant]
  11. ALLOPURINOL [Concomitant]
  12. TRAMADOL [Concomitant]
  13. GABAPENTIN [Concomitant]
  14. WELCHOL [Concomitant]

REACTIONS (4)
  - Fall [Unknown]
  - Hip arthroplasty [Unknown]
  - Hip fracture [Recovered/Resolved]
  - Palpitations [Unknown]
